FAERS Safety Report 5117433-0 (Version None)
Quarter: 2006Q3

REPORT INFORMATION
  Report Type: 
  Country: None (occurrence: None)
  Receive Date: 20060926
  Receipt Date: 20060907
  Transmission Date: 20061208
  Serious: Yes (Hospitalization)
  Sender: FDA-Public Use
  Company Number: US200609002295

PATIENT
  Age: 64 Year
  Sex: Female

DRUGS (7)
  1. HUMALOG [Suspect]
     Indication: DIABETES MELLITUS
     Dates: start: 20051001
  2. HUMULIN N [Suspect]
     Indication: DIABETES MELLITUS
     Dates: start: 20051001
  3. ACTIGALL [Concomitant]
  4. PROGRAF   /USA/ (TACROLIMUS) [Concomitant]
  5. PREVACID [Concomitant]
  6. VITAMINS NOS (VITAMIN NOS) [Concomitant]
  7. BUMEX [Concomitant]

REACTIONS (4)
  - BLOOD GLUCOSE DECREASED [None]
  - DEHYDRATION [None]
  - FLUID RETENTION [None]
  - PHARMACEUTICAL PRODUCT COMPLAINT [None]
